FAERS Safety Report 5981492-3 (Version None)
Quarter: 2008Q4

REPORT INFORMATION
  Report Type: 
  Country: None (occurrence: None)
  Receive Date: 20081205
  Receipt Date: 20081125
  Transmission Date: 20090506
  Serious: Yes (Hospitalization)
  Sender: FDA-Public Use
  Company Number: US-ABBOTT-08P-163-0489742-00

PATIENT

DRUGS (3)
  1. HUMIRA [Suspect]
     Indication: ARTHRITIS
     Route: 058
  2. HUMIRA [Suspect]
     Route: 058
  3. HUMIRA [Suspect]
     Route: 058

REACTIONS (3)
  - ARTHRITIS [None]
  - DYSPHAGIA [None]
  - MONOPLEGIA [None]
